FAERS Safety Report 6575325-4 (Version None)
Quarter: 2010Q1

REPORT INFORMATION
  Report Type: 
  Country: None (occurrence: None)
  Receive Date: 20100209
  Receipt Date: 20100202
  Transmission Date: 20100710
  Serious: Yes (Other)
  Sender: FDA-Public Use
  Company Number: US-ROCHE-683544

PATIENT
  Sex: Male
  Weight: 69.4 kg

DRUGS (1)
  1. CAPECITABINE [Suspect]
     Indication: RECTAL CANCER
     Dosage: STRENGTH: 500 MG AND 150 MG
     Route: 048
     Dates: start: 20100118

REACTIONS (2)
  - POLLAKIURIA [None]
  - WOUND SECRETION [None]
